FAERS Safety Report 15884591 (Version 3)
Quarter: 2020Q3

REPORT INFORMATION
  Report Type: Report from Study
  Country: DE (occurrence: DE)
  Receive Date: 20190129
  Receipt Date: 20200811
  Transmission Date: 20201102
  Serious: Yes (Hospitalization, Other)
  Sender: FDA-Public Use
  Company Number: DE-BRISTOL-MYERS SQUIBB COMPANY-BMS-2018-124306

PATIENT
  Age: 78 Year
  Sex: Male
  Weight: 63 kg

DRUGS (1)
  1. NIVOLUMAB [Suspect]
     Active Substance: NIVOLUMAB
     Indication: OESOPHAGEAL SQUAMOUS CELL CARCINOMA
     Dosage: 1 DF, UNK
     Route: 065
     Dates: start: 20181221, end: 20190104

REACTIONS (1)
  - Syncope [Recovered/Resolved]

NARRATIVE: CASE EVENT DATE: 20190114
